FAERS Safety Report 8567705-2 (Version None)
Quarter: 2012Q3

REPORT INFORMATION
  Report Type: 
  Country: None (occurrence: None)
  Receive Date: 20120803
  Receipt Date: 20120725
  Transmission Date: 20120928
  Serious: Yes (Hospitalization)
  Sender: FDA-Public Use
  Company Number: US-GLAXOSMITHKLINE-A0977032A

PATIENT
  Sex: Male
  Weight: 79.5 kg

DRUGS (8)
  1. GLUCOVANCE [Concomitant]
  2. VIAGRA [Concomitant]
  3. AVANDAMET [Suspect]
     Indication: DIABETES MELLITUS
     Route: 048
  4. GLUCOPHAGE [Concomitant]
  5. AVANDIA [Suspect]
     Indication: TYPE 2 DIABETES MELLITUS
     Dosage: 8MG PER DAY
     Route: 048
     Dates: start: 20031101, end: 20070101
  6. LANTUS [Concomitant]
  7. AMITRIPTYLINE HCL [Concomitant]
  8. PROSCAR [Concomitant]

REACTIONS (7)
  - CEREBRAL INFARCTION [None]
  - MYOCARDIAL INFARCTION [None]
  - CEREBROVASCULAR ACCIDENT [None]
  - ARTERIOSCLEROSIS CORONARY ARTERY [None]
  - CARDIOMYOPATHY [None]
  - ARRHYTHMIA [None]
  - TRANSIENT ISCHAEMIC ATTACK [None]
